FAERS Safety Report 8500210-8 (Version None)
Quarter: 2012Q3

REPORT INFORMATION
  Report Type: 
  Country: None (occurrence: None)
  Receive Date: 20120710
  Receipt Date: 20120705
  Transmission Date: 20120928
  Serious: Yes (Death, Other)
  Sender: FDA-Public Use
  Company Number: US-CELGENEUS-163-21880-12060690

PATIENT
  Sex: Female

DRUGS (18)
  1. MEGESTROL AC [Concomitant]
     Dosage: 20 MILLIGRAM
     Route: 065
     Dates: start: 20120508
  2. SIMVASTATIN [Concomitant]
     Dosage: 40 MILLIGRAM
     Route: 065
     Dates: start: 20120508
  3. VITAMIN D [Concomitant]
     Dosage: 2000 UNIT
     Route: 065
     Dates: start: 20120508
  4. LIDODERM [Concomitant]
     Dosage: 5 PERCENT
     Route: 065
     Dates: start: 20120604
  5. LORAZEPAM [Concomitant]
     Dosage: .5 MILLIGRAM
     Route: 065
     Dates: start: 20120604
  6. MAGNESIUM SULFATE [Concomitant]
     Dosage: 400 MILLIGRAM
     Route: 065
     Dates: start: 20120508
  7. COUMADIN [Concomitant]
     Dosage: 2.5 MILLIGRAM
     Route: 065
     Dates: start: 20120508
  8. SENNA S [Concomitant]
     Route: 065
     Dates: start: 20120529
  9. NYSTATIN [Concomitant]
     Route: 048
     Dates: start: 20120530
  10. SPIRONOLACT [Concomitant]
     Dosage: 25 MILLIGRAM
     Route: 065
     Dates: start: 20120508
  11. ATENOLOL [Concomitant]
     Dosage: 25 MILLIGRAM
     Route: 065
     Dates: start: 20120508
  12. NYSTATIN [Concomitant]
     Dosage: 100000
     Route: 048
     Dates: start: 20120508
  13. OMEPRAZOLE [Concomitant]
     Dosage: 20 MILLIGRAM
     Route: 065
     Dates: start: 20120526
  14. ASCORBIC ACID [Concomitant]
     Dosage: 500 MILLIGRAM
     Route: 065
     Dates: start: 20120508
  15. REVLIMID [Suspect]
     Indication: B-CELL LYMPHOMA
     Dosage: 10 MILLIGRAM
     Route: 048
     Dates: start: 20120507, end: 20120518
  16. OXYCODONE HCL [Concomitant]
     Dosage: 20 MILLIGRAM/MILLILITERS
     Route: 065
     Dates: start: 20120529
  17. AROMASIN [Concomitant]
     Dosage: 25 MILLIGRAM
     Route: 065
     Dates: start: 20120508
  18. MULTI FOR HER [Concomitant]
     Route: 065
     Dates: start: 20120508

REACTIONS (3)
  - RENAL FAILURE CHRONIC [None]
  - PANCYTOPENIA [None]
  - NO THERAPEUTIC RESPONSE [None]
